FAERS Safety Report 8534113-X (Version None)
Quarter: 2012Q3

REPORT INFORMATION
  Report Type: 
  Country: None (occurrence: None)
  Receive Date: 20120724
  Receipt Date: 20120711
  Transmission Date: 20120928
  Serious: Yes (Hospitalization, Other)
  Sender: FDA-Public Use
  Company Number: FR-MSD-1204USA03563

PATIENT

DRUGS (12)
  1. AMANTADINE HCL [Suspect]
     Dosage: 100 MG, BID
     Route: 048
  2. PRAMIPEXOLE DIHYDROCHLORIDE [Suspect]
     Indication: RESTLESS LEGS SYNDROME
     Dosage: 0.35 MG, TID
     Route: 048
  3. ESCITALOPRAM [Concomitant]
     Dosage: 5 MG, QD
     Route: 048
     Dates: start: 20110901, end: 20120410
  4. ACETAMINOPHEN [Concomitant]
     Dosage: 1 G, TID
     Route: 048
  5. CLONAZEPAM [Concomitant]
     Dosage: 10 DF, UNK
     Route: 048
     Dates: start: 20120504, end: 20120627
  6. IMURAN [Concomitant]
     Dosage: 50 MG, BID
     Route: 048
     Dates: start: 20040101, end: 20120211
  7. HYZAAR [Suspect]
     Indication: HYPERTENSION
     Dosage: 1 DF, QD
     Route: 048
     Dates: end: 20120402
  8. FOLIC ACID [Concomitant]
     Dosage: 10 MG, QD
     Route: 048
     Dates: end: 20120504
  9. LEVOTHYROXINE SODIUM [Concomitant]
     Dosage: 12.5 A?G, QD
     Route: 048
  10. CLONAZEPAM [Concomitant]
     Dosage: UNK UNK, QD
     Route: 048
  11. LEVOTHYROXINE SODIUM [Concomitant]
     Indication: HYPOTHYROIDISM
     Dosage: 175 A?G, QD
     Route: 048
  12. AMANTADINE HCL [Suspect]
     Dosage: 100 MG, QD
     Dates: start: 20120604

REACTIONS (1)
  - RHABDOMYOLYSIS [None]
